FAERS Safety Report 9449627 (Version 1)
Quarter: 2013Q3

REPORT INFORMATION
  Report Type: Spontaneous
  Country: US (occurrence: US)
  Receive Date: 20130809
  Receipt Date: 20130809
  Transmission Date: 20140515
  Serious: Yes (Hospitalization, Other)
  Sender: FDA-Public Use
  Company Number: US-PFIZER INC-2013217138

PATIENT
  Age: 87 Year
  Sex: Female

DRUGS (14)
  1. DILANTIN [Suspect]
     Indication: CONVULSION
     Dosage: 300 MG, 1X/DAY, (100MG THREE CAPSULES)
     Dates: start: 20061210
  2. DILANTIN [Suspect]
     Dosage: 400 MG, 1X/DAY
     Dates: start: 20061212, end: 20070102
  3. DILANTIN [Suspect]
     Indication: CONVULSION
     Dosage: 800 MG, UNK
     Route: 042
     Dates: start: 20061210
  4. TYLENOL [Concomitant]
     Indication: PAIN
     Dosage: 650 MG, AS NEEDED
     Dates: start: 20061210, end: 20070109
  5. ALBUTEROL [Concomitant]
     Dosage: 2.5 MG, UNK
     Route: 048
     Dates: start: 20061210, end: 20070109
  6. IPRATROPIUM [Concomitant]
     Dosage: 2.5 ML, UNK
     Route: 045
     Dates: start: 20061210, end: 20070109
  7. MAXIPIME [Concomitant]
     Dosage: FOR EVERY 12 HOURS, UNK
     Route: 042
     Dates: start: 20061210, end: 20061217
  8. LORAZEPAM [Concomitant]
     Dosage: 1 MG, UNK
     Route: 042
     Dates: start: 20061210, end: 20061217
  9. TYLENOL W/CODEINE NO. 3 [Concomitant]
     Dosage: UNK
     Dates: start: 20061211, end: 20061218
  10. MULTIVITAMINS [Concomitant]
     Dosage: UNK
     Dates: start: 20061211, end: 20070111
  11. ASPIRIN [Concomitant]
     Dosage: UNK
     Route: 048
     Dates: start: 20061212, end: 20070111
  12. ZOCOR [Concomitant]
     Dosage: 40 MG, UNK
     Dates: start: 20061212, end: 20070111
  13. ALPHAGAN [Concomitant]
     Dosage: UNK
     Dates: start: 20061212, end: 20070111
  14. HYDROXYZINE [Concomitant]
     Dosage: UNK
     Dates: start: 20061212, end: 20070111

REACTIONS (2)
  - Stevens-Johnson syndrome [Recovering/Resolving]
  - Toxic epidermal necrolysis [Recovering/Resolving]
